FAERS Safety Report 14413880 (Version 3)
Quarter: 2018Q1

REPORT INFORMATION
  Report Type: Spontaneous
  Country: FR (occurrence: FR)
  Receive Date: 20180119
  Receipt Date: 20180227
  Transmission Date: 20180509
  Serious: No
  Sender: FDA-Public Use
  Company Number: FR-BAUSCH-BL-2018-001252

PATIENT
  Age: 85 Year
  Sex: Female

DRUGS (2)
  1. ACYCLOVIR. [Suspect]
     Active Substance: ACYCLOVIR
     Indication: HERPES VIRUS INFECTION
     Dosage: FOR 10 DAYS
     Route: 042
  2. ACYCLOVIR. [Suspect]
     Active Substance: ACYCLOVIR
     Indication: PERINEAL ULCERATION

REACTIONS (2)
  - Drug ineffective [Unknown]
  - Drug resistance [Recovered/Resolved]
